FAERS Safety Report 17497284 (Version 2)
Quarter: 2020Q2

REPORT INFORMATION
  Report Type: Spontaneous
  Country: US (occurrence: US)
  Receive Date: 20200304
  Receipt Date: 20200430
  Transmission Date: 20200713
  Serious: Yes (Hospitalization, Other)
  Sender: FDA-Public Use
  Company Number: US-009507513-2003USA000762

PATIENT
  Sex: Female
  Weight: 96.51 kg

DRUGS (4)
  1. JANUVIA [Suspect]
     Active Substance: SITAGLIPTIN PHOSPHATE
     Indication: TYPE 2 DIABETES MELLITUS
     Dosage: 100 MILLIGRAM, QD
     Route: 048
     Dates: start: 20121003, end: 20130213
  2. VICTOZA [Suspect]
     Active Substance: LIRAGLUTIDE
     Indication: TYPE 2 DIABETES MELLITUS
     Dosage: 0.6 MILLIGRAM, QD
     Dates: start: 20130213, end: 20130220
  3. VICTOZA [Suspect]
     Active Substance: LIRAGLUTIDE
     Dosage: 1.2 MILLIGRAM, QD
     Dates: start: 20130221, end: 20140630
  4. BYETTA [Suspect]
     Active Substance: EXENATIDE
     Indication: TYPE 2 DIABETES MELLITUS
     Dosage: 5 MICROGRAM, BID
     Dates: start: 20050804, end: 20050903

REACTIONS (9)
  - Cholangitis acute [Unknown]
  - Neuropathy peripheral [Unknown]
  - Cholecystitis [Recovered/Resolved]
  - Pancreatitis chronic [Unknown]
  - Abscess [Unknown]
  - Diastasis recti abdominis [Unknown]
  - Umbilical hernia [Unknown]
  - Pancreatic carcinoma metastatic [Unknown]
  - Central nervous system lesion [Unknown]

NARRATIVE: CASE EVENT DATE: 2013
